FAERS Safety Report 22294532 (Version 2)
Quarter: 2024Q2

REPORT INFORMATION
  Report Type: Spontaneous
  Country: US (occurrence: US)
  Receive Date: 20230508
  Receipt Date: 20240415
  Transmission Date: 20240716
  Serious: No
  Sender: FDA-Public Use
  Company Number: US-ASTELLAS-2022US041232

PATIENT
  Age: 65 Year
  Sex: Female

DRUGS (4)
  1. LEXISCAN [Suspect]
     Active Substance: REGADENOSON
     Indication: Cardiac stress test
     Dosage: UNK, UNKNOWN FREQ. PARTIAL DOSE AS PART OF STRESS TEST (DID NOT FINISH INJECTION)
     Route: 042
     Dates: start: 20221116, end: 20221116
  2. LEXISCAN [Suspect]
     Active Substance: REGADENOSON
     Indication: Cardiac stress test
     Dosage: UNK, UNKNOWN FREQ. PARTIAL DOSE AS PART OF STRESS TEST (DID NOT FINISH INJECTION)
     Route: 042
     Dates: start: 20221116, end: 20221116
  3. LEXISCAN [Suspect]
     Active Substance: REGADENOSON
     Indication: Cardiac stress test
     Dosage: UNK, UNKNOWN FREQ. PARTIAL DOSE AS PART OF STRESS TEST (DID NOT FINISH INJECTION)
     Route: 042
     Dates: start: 20221116, end: 20221116
  4. LEXISCAN [Suspect]
     Active Substance: REGADENOSON
     Indication: Cardiac stress test
     Dosage: UNK, UNKNOWN FREQ. PARTIAL DOSE AS PART OF STRESS TEST (DID NOT FINISH INJECTION)
     Route: 042
     Dates: start: 20221116, end: 20221116

REACTIONS (3)
  - Injection site extravasation [Unknown]
  - Injection site irritation [Unknown]
  - Injection site pain [Unknown]

NARRATIVE: CASE EVENT DATE: 20221116
